FAERS Safety Report 6644494-X (Version None)
Quarter: 2010Q1

REPORT INFORMATION
  Report Type: 
  Country: None (occurrence: None)
  Receive Date: 20100322
  Receipt Date: 20100311
  Transmission Date: 20100710
  Serious: Yes (Hospitalization)
  Sender: FDA-Public Use
  Company Number: US-JNJFOC-20100303920

PATIENT
  Sex: Male
  Weight: 15.3 kg

DRUGS (17)
  1. INFLIXIMAB [Suspect]
     Indication: CROHN'S DISEASE
     Route: 042
  2. INFLIXIMAB [Suspect]
     Route: 042
  3. TRILEPTAL [Concomitant]
  4. KEPPRA [Concomitant]
  5. CARAFATE [Concomitant]
  6. PREVACID [Concomitant]
  7. ALLEGRA [Concomitant]
  8. XOPENEX [Concomitant]
  9. PULMICORT [Concomitant]
  10. ACETAMINOPHEN [Concomitant]
  11. IBUPROFEN [Concomitant]
  12. DIPHENHYDRAMINE HYDROCHLORIDE [Concomitant]
  13. DIAZEPAM [Concomitant]
  14. CLONAZEPAM [Concomitant]
  15. DIASTASE [Concomitant]
  16. IMODIUM [Concomitant]
  17. ERYTHROMYCIN ETHYLSUCCINATE [Concomitant]

REACTIONS (2)
  - DEHYDRATION [None]
  - DISEASE PROGRESSION [None]
